FAERS Safety Report 19988038 (Version 1)
Quarter: 2021Q4

REPORT INFORMATION
  Report Type: Spontaneous
  Country: GB (occurrence: GB)
  Receive Date: 20211023
  Receipt Date: 20211023
  Transmission Date: 20220303
  Serious: Yes (Hospitalization, Other)
  Sender: FDA-Public Use
  Company Number: None

PATIENT
  Age: 2 Year
  Sex: Female

DRUGS (13)
  1. TOPOTECAN HYDROCHLORIDE [Suspect]
     Active Substance: TOPOTECAN HYDROCHLORIDE
     Indication: Refractory cancer
     Route: 042
     Dates: start: 20210802, end: 20210827
  2. CYCLOPHOSPHAMIDE [Suspect]
     Active Substance: CYCLOPHOSPHAMIDE
     Indication: Refractory cancer
     Dosage: 250 MG/M2 (GIVEN FOR 5 DAYS)
     Route: 042
     Dates: start: 20210802, end: 20210827
  3. VENETOCLAX [Suspect]
     Active Substance: VENETOCLAX
     Indication: Refractory cancer
     Dosage: 80 MG, QD, ROUTE (VIA TUBE SUPPORT)
     Route: 065
     Dates: start: 20210802, end: 20210802
  4. CYCLIZINE [Concomitant]
     Active Substance: CYCLIZINE
     Dosage: UNK
     Route: 065
     Dates: start: 20210824
  5. DEXAMETHASONE [Concomitant]
     Active Substance: DEXAMETHASONE
     Indication: Prophylaxis
     Dosage: 2 MG, BID
     Route: 042
     Dates: start: 20210802, end: 20210807
  6. FILGRASTIM [Concomitant]
     Active Substance: FILGRASTIM
     Dosage: 1.5 MG, QD
     Route: 030
     Dates: start: 20210829, end: 20210829
  7. FUROSEMIDE [Concomitant]
     Active Substance: FUROSEMIDE
     Indication: Transfusion
     Dosage: 5.4 MG, 4 IN 1 AS REQUIRED
     Route: 042
     Dates: start: 20210805
  8. MELATONIN [Concomitant]
     Active Substance: MELATONIN
     Indication: Prophylaxis
     Dosage: 2 MG, (2 MG,1 IN 1 D)
     Route: 048
     Dates: start: 20210801
  9. METHADONE [Concomitant]
     Active Substance: METHADONE HYDROCHLORIDE
     Indication: Pain
     Dosage: 0.6 MG, BID
     Route: 048
     Dates: start: 20210805
  10. METOCLOPRAMIDE [Concomitant]
     Active Substance: METOCLOPRAMIDE
     Dosage: 1 MG, TID
     Route: 042
     Dates: start: 20210803
  11. MORPHINE SULFATE [Concomitant]
     Active Substance: MORPHINE SULFATE
     Dosage: 3 MG, Q4H
     Route: 048
     Dates: start: 20210803, end: 20210804
  12. ONDANSETRON [Concomitant]
     Active Substance: ONDANSETRON
     Dosage: UNK
     Route: 065
     Dates: start: 20210824
  13. ACETAMINOPHEN [Concomitant]
     Active Substance: ACETAMINOPHEN
     Indication: Pain
     Dosage: 155 MG, QD, 1 IN 1 AS REQUIRED
     Route: 042
     Dates: start: 20210802

REACTIONS (5)
  - Febrile neutropenia [Recovered/Resolved]
  - Pyrexia [Unknown]
  - Upper respiratory tract infection [Not Recovered/Not Resolved]
  - Malignant neoplasm progression [Unknown]
  - Refractory cancer [Unknown]

NARRATIVE: CASE EVENT DATE: 20210909
